FAERS Safety Report 5171173-0 (Version None)
Quarter: 2006Q4

REPORT INFORMATION
  Report Type: 
  Country: None (occurrence: None)
  Receive Date: 20061208
  Receipt Date: 20061208
  Transmission Date: 20070319
  Serious: Yes (Hospitalization)
  Sender: FDA-Public Use
  Company Number: None

PATIENT
  Age: 84 Year
  Sex: Male
  Weight: 98.8842 kg

DRUGS (1)
  1. CAPECITABINE [Suspect]
     Indication: SQUAMOUS CELL CARCINOMA
     Dosage: 2000GM BID PO
     Route: 048
     Dates: start: 20060728, end: 20060908

REACTIONS (3)
  - CONSTIPATION [None]
  - DIARRHOEA [None]
  - ORAL INTAKE REDUCED [None]
